FAERS Safety Report 9012609 (Version 3)
Quarter: 2013Q2

REPORT INFORMATION
  Report Type: Spontaneous
  Country: FR (occurrence: FR)
  Receive Date: 20130114
  Receipt Date: 20130604
  Transmission Date: 20140414
  Serious: Yes (Hospitalization, Other)
  Sender: FDA-Public Use
  Company Number: FR-PFIZER INC-2013008168

PATIENT
  Age: 25 Day
  Sex: Female

DRUGS (2)
  1. ZYVOXID [Suspect]
     Indication: STAPHYLOCOCCAL INFECTION
     Dosage: 10 MG/KG, 3X/DAY
     Route: 042
     Dates: start: 20130104, end: 20130110
  2. VANCOMYCIN [Concomitant]
     Indication: STAPHYLOCOCCAL INFECTION
     Dosage: UNK
     Dates: end: 20130103

REACTIONS (1)
  - Necrosis [Recovered/Resolved]
